FAERS Safety Report 4271375-1 (Version None)
Quarter: 2004Q1

REPORT INFORMATION
  Report Type: 
  Country: None (occurrence: None)
  Receive Date: 20040113
  Receipt Date: 20040107
  Transmission Date: 20041129
  Serious: Yes (Hospitalization)
  Sender: FDA-Public Use
  Company Number: US-JNJFOC-20040101194

PATIENT
  Age: 34 Year
  Sex: Female

DRUGS (8)
  1. DURAGESIC [Suspect]
     Indication: PAIN
     Dosage: 75 UG/HR, TRANSDERMAL; 50 UG/HR, 1 IN 72 HOUR, TRANSDERMAL
     Route: 062
     Dates: start: 20030401, end: 20031201
  2. DURAGESIC [Suspect]
     Indication: PAIN
     Dosage: 75 UG/HR, TRANSDERMAL; 50 UG/HR, 1 IN 72 HOUR, TRANSDERMAL
     Route: 062
     Dates: start: 20031201
  3. LEVOXYL [Concomitant]
  4. PROZAC [Concomitant]
  5. NEXIUM [Concomitant]
  6. FLOMAX [Concomitant]
  7. VALTREX [Concomitant]
  8. KLONAPIN (CLONAZEPAM) [Concomitant]

REACTIONS (3)
  - CONVULSION [None]
  - DRUG LEVEL DECREASED [None]
  - DRUG WITHDRAWAL SYNDROME [None]
